FAERS Safety Report 4802870-1 (Version None)
Quarter: 2005Q4

REPORT INFORMATION
  Report Type: 
  Country: None (occurrence: None)
  Receive Date: 20051017
  Receipt Date: 20051017
  Transmission Date: 20060501
  Serious: No
  Sender: FDA-Public Use
  Company Number: None

PATIENT
  Age: 43 Year
  Sex: Female

DRUGS (13)
  1. TRUVADA [Suspect]
     Indication: HIV INFECTION
     Dates: start: 20050201, end: 20050407
  2. EFAVIRENZ [Suspect]
     Dates: start: 20050201, end: 20050407
  3. LAMIVUDINE [Concomitant]
  4. ZIDOVUDINE [Concomitant]
  5. EFAVIRENZ [Concomitant]
  6. METHADONE [Concomitant]
  7. OMEPRAZOLE [Concomitant]
  8. ALBUTEROL [Concomitant]
  9. SALMETEROL/FLUTICASONE [Concomitant]
  10. TRAZODONE HCL [Concomitant]
  11. LORATADINE [Concomitant]
  12. ATENOLOL [Concomitant]
  13. HYDROCHLOROTHIAZIDE [Concomitant]

REACTIONS (1)
  - BLOOD CREATININE INCREASED [None]
